FAERS Safety Report 7707278 (Version 2)
Quarter: 2012Q4

REPORT INFORMATION
  Report Type: 
  Country: US (occurrence: US)
  Receive Date: 20101214
  Receipt Date: 20121026
  Transmission Date: 20130627
  Serious: No
  Sender: FDA-Public Use
  Company Number: US-ASTRAZENECA-2009SE20189

PATIENT
  Age: 65 Year
  Sex: Female

DRUGS (9)
  1. CRESTOR [Suspect]
     Route: 048
  2. PLAVIX [Concomitant]
  3. CALAN [Concomitant]
  4. ISORBIDE [Concomitant]
  5. BABY ASPIRIN [Concomitant]
  6. LASIX [Concomitant]
  7. OXYCODONE [Concomitant]
  8. GABAPENTIN [Concomitant]
  9. POTASSIUM [Concomitant]

REACTIONS (3)
  - Lower limb fracture [Unknown]
  - Nerve injury [Unknown]
  - Muscular weakness [Unknown]
